FAERS Safety Report 9089124 (Version 2)
Quarter: 2013Q3

REPORT INFORMATION
  Report Type: Report from Study
  Country: US (occurrence: US)
  Receive Date: 20130201
  Receipt Date: 20130701
  Transmission Date: 20140515
  Serious: Yes (Hospitalization, Other)
  Sender: FDA-Public Use
  Company Number: US-ABBOTT-12P-163-1023857-00

PATIENT
  Sex: Male

DRUGS (2)
  1. HUMIRA [Suspect]
     Indication: RHEUMATOID ARTHRITIS
     Dates: start: 200401
  2. HUMIRA [Suspect]
     Dates: start: 201006

REACTIONS (3)
  - Ureteric obstruction [Unknown]
  - Nephrolithiasis [Not Recovered/Not Resolved]
  - Urinary tract infection fungal [Unknown]
